FAERS Safety Report 11618734 (Version 1)
Quarter: 2015Q4

REPORT INFORMATION
  Report Type: Spontaneous
  Country: US (occurrence: US)
  Receive Date: 20151012
  Receipt Date: 20151012
  Transmission Date: 20160304
  Serious: Yes (Death, Life-Threatening, Hospitalization, Other)
  Sender: FDA-Public Use
  Company Number: US-HOSPIRA-3032044

PATIENT
  Age: 73 Year
  Sex: Male
  Weight: 80.73 kg

DRUGS (19)
  1. CLINDAMYCIN [Suspect]
     Active Substance: CLINDAMYCIN\CLINDAMYCIN PHOSPHATE
     Indication: GOUTY ARTHRITIS
     Dosage: ONCE
     Route: 042
     Dates: start: 20150814, end: 20150814
  2. MULTIVITAMIN                       /00097801/ [Concomitant]
     Active Substance: VITAMINS
     Indication: VITAMIN SUPPLEMENTATION
     Dates: start: 19900305
  3. SITAGLIPTIN [Concomitant]
     Active Substance: SITAGLIPTIN
     Indication: TYPE 2 DIABETES MELLITUS
     Dates: start: 20130315
  4. IRON [Concomitant]
     Active Substance: IRON
     Indication: IRON DEFICIENCY
     Dates: start: 20100405
  5. FISH OIL [Concomitant]
     Active Substance: FISH OIL
     Indication: ARTERIOSCLEROSIS
     Dates: start: 20100405
  6. ASPIRIN                            /00002701/ [Concomitant]
     Active Substance: ASPIRIN
     Indication: ARTERIOSCLEROSIS
     Dates: start: 19980205
  7. PLACEBO [Concomitant]
     Active Substance: UNSPECIFIED INGREDIENT
     Indication: CARDIOVASCULAR DISORDER
     Route: 058
     Dates: start: 20150819
  8. PRUNUS SEROTINA [Concomitant]
     Indication: GOUT
     Dates: start: 20150601
  9. TORADOL [Concomitant]
     Active Substance: KETOROLAC TROMETHAMINE
     Indication: GOUTY ARTHRITIS
     Dates: start: 20150814, end: 20150814
  10. NAPROXEN. [Concomitant]
     Active Substance: NAPROXEN
     Indication: GOUTY ARTHRITIS
     Dates: start: 20150814
  11. NORCO [Concomitant]
     Active Substance: ACETAMINOPHEN\HYDROCODONE BITARTRATE
     Indication: GOUTY ARTHRITIS
     Dates: start: 20150814
  12. PIOGLITAZONE. [Concomitant]
     Active Substance: PIOGLITAZONE
     Indication: TYPE 2 DIABETES MELLITUS
     Dates: start: 20150407
  13. PRUNUS SEROTINA [Concomitant]
     Indication: PHYTOTHERAPY
     Dates: start: 20150601
  14. COENZYME Q10 [Concomitant]
     Active Substance: UBIDECARENONE
     Indication: ENZYME SUPPLEMENTATION
     Dates: start: 19980315
  15. INDOCIN [Concomitant]
     Active Substance: INDOMETHACIN\INDOMETHACIN SODIUM
     Indication: GOUT
     Dates: start: 20150814
  16. LEVOTHYROXINE. [Concomitant]
     Active Substance: LEVOTHYROXINE
     Indication: HYPOTHYROIDISM
     Route: 048
     Dates: start: 19990625
  17. KOJI [Concomitant]
     Indication: PHYTOTHERAPY
     Dates: start: 20150601
  18. ROCEPHIN [Suspect]
     Active Substance: CEFTRIAXONE SODIUM
     Indication: GOUTY ARTHRITIS
     Dosage: ONCE
     Route: 042
     Dates: start: 20150814, end: 20150814
  19. LISINOPRIL. [Concomitant]
     Active Substance: LISINOPRIL
     Indication: HYPERTENSION
     Dates: start: 19980813

REACTIONS (4)
  - Clostridium difficile colitis [Fatal]
  - Tachycardia [Not Recovered/Not Resolved]
  - Sepsis [Fatal]
  - Megacolon [Fatal]

NARRATIVE: CASE EVENT DATE: 20150826
